FAERS Safety Report 13420395 (Version 1)
Quarter: 2017Q2

REPORT INFORMATION
  Report Type: Spontaneous
  Country: AU (occurrence: AU)
  Receive Date: 20170407
  Receipt Date: 20170407
  Transmission Date: 20170830
  Serious: Yes (Death, Hospitalization)
  Sender: FDA-Public Use
  Company Number: AU-ALKEM LABORATORIES LIMITED-AU-ALKEM-2017-00129

PATIENT
  Age: 39 Year
  Sex: Male

DRUGS (4)
  1. OXYCODONE [Suspect]
     Active Substance: OXYCODONE
     Indication: PRODUCT USED FOR UNKNOWN INDICATION
     Dosage: UNKNOWN
  2. NITRAZEPAM [Suspect]
     Active Substance: NITRAZEPAM
     Indication: PRODUCT USED FOR UNKNOWN INDICATION
     Dosage: UNKNOWN
  3. OXAZEPAM. [Suspect]
     Active Substance: OXAZEPAM
     Indication: PRODUCT USED FOR UNKNOWN INDICATION
     Dosage: UNKNOWN
  4. METHADONE HYDROCHLORIDE. [Suspect]
     Active Substance: METHADONE HYDROCHLORIDE
     Indication: PRODUCT USED FOR UNKNOWN INDICATION
     Dosage: UNKNOWN

REACTIONS (11)
  - Overdose [Fatal]
  - Metabolic acidosis [Unknown]
  - Cardiac arrest [Unknown]
  - Acute kidney injury [Unknown]
  - Hepatic failure [Unknown]
  - Multiple organ dysfunction syndrome [Fatal]
  - Toxicity to various agents [Fatal]
  - Disseminated intravascular coagulation [Unknown]
  - Renal tubular necrosis [Unknown]
  - Rhabdomyolysis [Unknown]
  - Brain injury [Unknown]
